FAERS Safety Report 7069453-7 (Version None)
Quarter: 2010Q4

REPORT INFORMATION
  Report Type: 
  Country: None (occurrence: None)
  Receive Date: 20101028
  Receipt Date: 20101022
  Transmission Date: 20110411
  Serious: Yes (Hospitalization)
  Sender: FDA-Public Use
  Company Number: US-GILEAD-2010-0032843

PATIENT
  Sex: Female
  Weight: 59.928 kg

DRUGS (8)
  1. LETAIRIS [Suspect]
     Indication: PULMONARY ARTERIAL HYPERTENSION
     Route: 048
     Dates: start: 20100907
  2. REVATIO [Concomitant]
  3. DARVOCET-N 100 [Concomitant]
  4. AMBIEN [Concomitant]
  5. ACCURETIC [Concomitant]
  6. CARDIZEM [Concomitant]
  7. PRILOSEC [Concomitant]
  8. ASPIRIN [Concomitant]

REACTIONS (2)
  - DYSPNOEA [None]
  - HEPATIC ENZYME ABNORMAL [None]
